FAERS Safety Report 5915919-X (Version None)
Quarter: 2008Q4

REPORT INFORMATION
  Report Type: 
  Country: None (occurrence: None)
  Receive Date: 20081010
  Receipt Date: 20081002
  Transmission Date: 20090506
  Serious: Yes (Other)
  Sender: FDA-Public Use
  Company Number: US-PFIZER INC-2008083387

PATIENT
  Sex: Male
  Weight: 81.6 kg

DRUGS (9)
  1. LIPITOR [Suspect]
  2. AMLODIPINE [Concomitant]
  3. NIASPAN [Concomitant]
  4. METOPROLOL TARTRATE [Concomitant]
  5. ASPIRIN 10GR TIMED DISINTEGRATION TAB [Concomitant]
  6. FISH OIL [Concomitant]
  7. ALL OTHER THERAPEUTIC PRODUCTS [Concomitant]
  8. ACIPHEX [Concomitant]
     Indication: GASTROOESOPHAGEAL REFLUX DISEASE
  9. TUMS [Concomitant]
     Indication: GASTROOESOPHAGEAL REFLUX DISEASE

REACTIONS (3)
  - MEDICATION RESIDUE [None]
  - VASCULAR GRAFT [None]
  - WEIGHT INCREASED [None]
